FAERS Safety Report 14274932 (Version 1)
Quarter: 2017Q4

REPORT INFORMATION
  Report Type: Spontaneous
  Country: US (occurrence: US)
  Receive Date: 20171212
  Receipt Date: 20171212
  Transmission Date: 20180321
  Serious: No
  Sender: FDA-Public Use
  Company Number: US-LUPIN PHARMACEUTICALS INC.-2017-06641

PATIENT
  Age: 4 Decade
  Sex: Female

DRUGS (1)
  1. QUETIAPINE FUMARATE EXTENDED-RELEASE [Suspect]
     Active Substance: QUETIAPINE FUMARATE
     Indication: BRIEF PSYCHOTIC DISORDER, WITH POSTPARTUM ONSET
     Dosage: LOW-DOSE EXTENDED RELEASE
     Route: 065

REACTIONS (1)
  - Sedation complication [Unknown]
